FAERS Safety Report 8324676-1 (Version None)
Quarter: 2012Q2

REPORT INFORMATION
  Report Type: 
  Country: None (occurrence: None)
  Receive Date: 20120501
  Receipt Date: 20120427
  Transmission Date: 20120825
  Serious: No
  Sender: FDA-Public Use
  Company Number: US-PFIZER INC-2012088982

PATIENT
  Sex: Female
  Weight: 86.168 kg

DRUGS (4)
  1. CHANTIX [Suspect]
     Indication: SMOKING CESSATION THERAPY
     Dosage: 1 MG, UNK
     Dates: start: 20120101
  2. VALIUM [Concomitant]
     Dosage: 10 MG, DAILY
  3. NEURONTIN [Concomitant]
     Indication: PAIN
     Dosage: 300 MG, DAILY
  4. LORTAB [Concomitant]
     Indication: PAIN
     Dosage: 7.5 MG, DAILY

REACTIONS (2)
  - DRUG DISPENSING ERROR [None]
  - CHEST PAIN [None]
